FAERS Safety Report 11163802 (Version 1)
Quarter: 2015Q2

REPORT INFORMATION
  Report Type: Spontaneous
  Country: US (occurrence: US)
  Receive Date: 20150604
  Receipt Date: 20150604
  Transmission Date: 20150821
  Serious: No
  Sender: FDA-Public Use
  Company Number: US-009507513-1505USA011808

PATIENT
  Age: 79 Year
  Sex: Female
  Weight: 73.4 kg

DRUGS (4)
  1. KEYTRUDA [Suspect]
     Active Substance: PEMBROLIZUMAB
     Indication: RICHTER^S SYNDROME
     Dosage: 200 MG, ONCE EVERY 3 WEEKS
     Route: 042
     Dates: start: 20150429
  2. PENTAMIDINE ISETHIONATE [Concomitant]
     Active Substance: PENTAMIDINE ISETHIONATE
     Dosage: UNKNOWN
     Dates: start: 20150505
  3. CIPROFLOXACIN. [Concomitant]
     Active Substance: CIPROFLOXACIN
     Dosage: UNKNOWN
     Dates: start: 20150506, end: 20150508
  4. CEFTIN [Concomitant]
     Active Substance: CEFUROXIME AXETIL
     Dosage: UNKNOWN
     Dates: start: 20150509, end: 20150515

REACTIONS (3)
  - Myalgia [Not Recovered/Not Resolved]
  - Urinary tract infection [Unknown]
  - Pain [Unknown]

NARRATIVE: CASE EVENT DATE: 201505
